FAERS Safety Report 5485917-1 (Version None)
Quarter: 2007Q4

REPORT INFORMATION
  Report Type: 
  Country: None (occurrence: None)
  Receive Date: 20071015
  Receipt Date: 20071010
  Transmission Date: 20080405
  Serious: Yes (Hospitalization, Disabling)
  Sender: FDA-Public Use
  Company Number: FR-SHR-FR-2007-012919

PATIENT
  Age: 59 Year
  Sex: Female

DRUGS (18)
  1. MAGNEVIST [Suspect]
     Dosage: .27 ML/KG, 1 DOSE
     Route: 042
     Dates: start: 20041110, end: 20041110
  2. MAGNEVIST [Suspect]
     Dosage: .28 ML/KG, 1 DOSE
     Route: 042
     Dates: start: 20041217, end: 20041217
  3. MAGNEVIST [Suspect]
     Dosage: .29 ML/KG, 1 DOSE
     Route: 042
     Dates: start: 20050221, end: 20050221
  4. MAGNEVIST [Suspect]
     Dosage: .3 ML/KG, 1 DOSE
     Route: 042
     Dates: start: 20050530, end: 20050530
  5. DOTAREM [Suspect]
     Indication: NUCLEAR MAGNETIC RESONANCE IMAGING
     Route: 042
     Dates: start: 20030605, end: 20030605
  6. DOTAREM [Suspect]
     Route: 042
     Dates: start: 20031023, end: 20031023
  7. DOTAREM [Suspect]
     Route: 042
     Dates: start: 20031030, end: 20031030
  8. DOTAREM [Suspect]
     Route: 042
     Dates: start: 20040318, end: 20040318
  9. OMNISCAN [Suspect]
     Indication: NUCLEAR MAGNETIC RESONANCE IMAGING
     Dosage: .26 ML/KG, 1 DOSE
     Route: 042
     Dates: start: 20030526, end: 20030526
  10. OMNISCAN [Suspect]
     Dosage: .27 ML/KG, 1 DOSE
     Route: 042
     Dates: start: 20041117, end: 20041117
  11. OMNISCAN [Suspect]
     Dosage: .27 ML/KG, 1 DOSE
     Route: 042
     Dates: start: 20060204, end: 20060204
  12. OMNISCAN [Suspect]
     Dosage: .26 ML/KG, 1 DOSE
     Route: 042
     Dates: start: 20060720, end: 20060720
  13. PROLEUKIN [Concomitant]
     Dosage: 15 MIU, 3X/WEEK
     Route: 058
     Dates: start: 20041201, end: 20050101
  14. INTRON A [Concomitant]
     Dosage: 15 MIU, 3X/WEEK
     Route: 050
     Dates: start: 20041201, end: 20050101
  15. CELECTOL [Concomitant]
     Route: 048
     Dates: start: 19970101
  16. LIPANOR [Concomitant]
     Route: 048
     Dates: start: 19970101
  17. FLUOROURACIL [Concomitant]
     Dosage: 2 CYCLES
     Dates: start: 20050101
  18. VELBE [Concomitant]
     Dosage: 2 CYCLES
     Dates: start: 20050101

REACTIONS (1)
  - NEPHROGENIC SYSTEMIC FIBROSIS [None]
